FAERS Safety Report 15790217 (Version 1)
Quarter: 2019Q1

REPORT INFORMATION
  Report Type: Spontaneous
  Country: US (occurrence: US)
  Receive Date: 20190104
  Receipt Date: 20190104
  Transmission Date: 20190417
  Serious: Yes (Life-Threatening, Other)
  Sender: FDA-Public Use
  Company Number: US-PFIZER INC-2018536140

PATIENT
  Age: 9 Decade
  Sex: Female

DRUGS (1)
  1. AMLODIPINE BESILATE [Suspect]
     Active Substance: AMLODIPINE BESYLATE
     Indication: BLOOD PRESSURE ABNORMAL
     Dosage: UNK

REACTIONS (6)
  - Nausea [Unknown]
  - Headache [Unknown]
  - Urinary incontinence [Unknown]
  - Disorientation [Unknown]
  - Hypertension [Unknown]
  - Cerebrovascular accident [Unknown]
